FAERS Safety Report 23106241 (Version 1)
Quarter: 2023Q4

REPORT INFORMATION
  Report Type: Spontaneous
  Country: CN (occurrence: CN)
  Receive Date: 20231025
  Receipt Date: 20231025
  Transmission Date: 20240110
  Serious: Yes (Other)
  Sender: FDA-Public Use
  Company Number: CN-PFIZER INC-PV202300175254

PATIENT
  Age: 48 Year
  Sex: Female
  Weight: 63 kg

DRUGS (6)
  1. METHOTREXATE SODIUM [Suspect]
     Active Substance: METHOTREXATE SODIUM
     Indication: Neoplasm
     Dosage: 15 MG, 1X/DAY
     Route: 008
     Dates: start: 20230918, end: 20230918
  2. DEXAMETHASONE SODIUM PHOSPHATE [Suspect]
     Active Substance: DEXAMETHASONE SODIUM PHOSPHATE
     Indication: Antiinflammatory therapy
     Dosage: 15 MG, 1X/DAY
     Route: 008
     Dates: start: 20230918, end: 20230918
  3. DEXAMETHASONE SODIUM PHOSPHATE [Suspect]
     Active Substance: DEXAMETHASONE SODIUM PHOSPHATE
     Indication: Immunosuppression
  4. CYTARABINE HYDROCHLORIDE [Suspect]
     Active Substance: CYTARABINE HYDROCHLORIDE
     Indication: Neoplasm
     Dosage: 0.05 G, 1X/DAY
     Route: 008
     Dates: start: 20230918, end: 20230918
  5. RITUXIMAB [Suspect]
     Active Substance: RITUXIMAB
     Indication: Neoplasm
     Dosage: 100 MG, 1X/DAY
     Route: 041
     Dates: start: 20230919, end: 20230919
  6. RITUXIMAB [Suspect]
     Active Substance: RITUXIMAB
     Indication: Neoplasm
     Dosage: 500 MG, 1X/DAY
     Route: 041
     Dates: start: 20230919, end: 20230919

REACTIONS (4)
  - Nausea [Recovering/Resolving]
  - Vomiting [Recovering/Resolving]
  - Abdominal distension [Recovering/Resolving]
  - Off label use [Unknown]

NARRATIVE: CASE EVENT DATE: 20230918
